FAERS Safety Report 9524718 (Version 1)
Quarter: 2013Q3

REPORT INFORMATION
  Report Type: Report from Study
  Country: KR (occurrence: KR)
  Receive Date: 20130916
  Receipt Date: 20130916
  Transmission Date: 20140515
  Serious: No
  Sender: FDA-Public Use
  Company Number: PHHY2013KR102119

PATIENT
  Age: 42 Year
  Sex: Female

DRUGS (6)
  1. AMN107 [Suspect]
     Indication: CHRONIC MYELOID LEUKAEMIA
     Dosage: 400 MG/DAY
     Route: 048
     Dates: start: 20120409
  2. LEVOCETIRIZINE [Concomitant]
     Indication: ANTIALLERGIC THERAPY
     Dosage: UNK
     Route: 048
     Dates: start: 20120716, end: 20120722
  3. MINOCYCLINE HCL [Concomitant]
     Indication: ANTIBIOTIC THERAPY
     Dosage: UNK
     Route: 048
     Dates: start: 20120716, end: 20120729
  4. FEXOFENADINE [Concomitant]
     Indication: ANTIALLERGIC THERAPY
     Dosage: UNK
     Route: 048
     Dates: start: 20120507, end: 20120516
  5. PREDNISOLONE [Concomitant]
     Indication: PRURITUS
     Dosage: UNK
     Route: 048
     Dates: start: 20120507, end: 20120510
  6. BEPOTASTINE [Concomitant]
     Dosage: UNK
     Route: 048
     Dates: start: 20120420, end: 20120504

REACTIONS (1)
  - Pruritus [Recovered/Resolved]
